FAERS Safety Report 8518251-3 (Version None)
Quarter: 2012Q3

REPORT INFORMATION
  Report Type: 
  Country: None (occurrence: None)
  Receive Date: 20120718
  Receipt Date: 20111202
  Transmission Date: 20120928
  Serious: No
  Sender: FDA-Public Use
  Company Number: US-BRISTOL-MYERS SQUIBB COMPANY-16267429

PATIENT
  Sex: Male

DRUGS (4)
  1. ATENOLOL [Concomitant]
  2. LIPITOR [Concomitant]
  3. COUMADIN [Suspect]
  4. CELEBREX [Concomitant]

REACTIONS (1)
  - ALOPECIA [None]
